FAERS Safety Report 8283434 (Version 5)
Quarter: 2012Q4

REPORT INFORMATION
  Report Type: 
  Country: JP (occurrence: JP)
  Receive Date: 20111212
  Receipt Date: 20121004
  Transmission Date: 20130627
  Serious: Yes (Disabling, Other)
  Sender: FDA-Public Use
  Company Number: JP-PFIZER INC-2011298027

PATIENT
  Age: 72 Year
  Sex: Male
  Weight: 62 kg

DRUGS (5)
  1. GENOTROPIN GOQUICK [Suspect]
     Indication: GROWTH HORMONE DEFICIENCY
     Dosage: 0.1 mg, 1x/day
     Route: 058
     Dates: start: 20100224, end: 20111221
  2. GENOTROPIN GOQUICK [Suspect]
     Dosage: 0.1 mg, 1x/day
     Route: 058
  3. EPLERENONE [Concomitant]
     Indication: PRIMARY HYPERALDOSTERONISM
     Dosage: 25-50 /day
     Route: 048
     Dates: start: 20110208
  4. AMOBAN [Concomitant]
     Indication: INSOMNIA
     Dosage: 7.5 UNK, 1x/day
     Route: 048
     Dates: start: 20091013
  5. PREDNISOLONE [Concomitant]
     Dosage: 5 UNK, 3x/day
     Route: 048
     Dates: start: 20111212

REACTIONS (5)
  - Neoplasm recurrence [Not Recovered/Not Resolved]
  - Acoustic neuroma [Not Recovered/Not Resolved]
  - Papillary thyroid cancer [Unknown]
  - Deafness [Not Recovered/Not Resolved]
  - Dizziness [Not Recovered/Not Resolved]
